FAERS Safety Report 10362878 (Version 1)
Quarter: 2014Q1

REPORT INFORMATION
  Report Type: Spontaneous
  Country: US (occurrence: None)
  Receive Date: 20140306
  Receipt Date: 20140306
  Transmission Date: 20141002
  Serious: Yes (Hospitalization)
  Sender: FDA-Public Use
  Company Number: 163-21880-13073772

PATIENT
  Age: 80 Year
  Sex: Female

DRUGS (9)
  1. REVLIMID (LENALIDOMIDE) (CAPSULES) [Suspect]
     Indication: PLASMA CELL MYELOMA
     Route: 048
     Dates: start: 20130625
  2. CLOPIDOGREL BISULFATE (CLOPIDOGREL SULFATE) (UNKNOWN) [Concomitant]
  3. DEXAMETHASONE (DEXAMETHASONE) (UNKNOWN) [Concomitant]
  4. ESCITALOPRAM OXALATE (ESCITALOPRAM OXALATE) (UNKNOWN) [Concomitant]
  5. GLIMEPIRIDE (GLIMEPIRIDE) (UNKNOWN) [Concomitant]
  6. OXYCODONE-ACETAMINOPHEN (OXYCOCET) (UNKNOWN) [Concomitant]
  7. STOOL SOFTENER (DOCUSATE SODIUM) (UNKNOWN) [Concomitant]
  8. WARFARIN SODIUM (WARFARIN SODIUM) (UNKNOWN) [Concomitant]
  9. ZOLEDRONIC ACID (ZOLEDRONIC ACID) (UNKNOWN) [Concomitant]

REACTIONS (1)
  - Full blood count decreased [None]
